FAERS Safety Report 25353637 (Version 4)
Quarter: 2025Q2

REPORT INFORMATION
  Report Type: Spontaneous
  Country: JP (occurrence: JP)
  Receive Date: 20250523
  Receipt Date: 20250623
  Transmission Date: 20250717
  Serious: Yes (Other)
  Sender: PFIZER
  Company Number: JP-PFIZER INC-PV202500061185

PATIENT
  Age: 74 Year
  Sex: Female

DRUGS (3)
  1. ELREXFIO [Suspect]
     Active Substance: ELRANATAMAB-BCMM
     Indication: Plasma cell myeloma
     Route: 058
  2. ELREXFIO [Suspect]
     Active Substance: ELRANATAMAB-BCMM
     Route: 058
  3. ELREXFIO [Suspect]
     Active Substance: ELRANATAMAB-BCMM
     Route: 058

REACTIONS (12)
  - Cytokine release syndrome [Recovered/Resolved]
  - Immune effector cell-associated neurotoxicity syndrome [Recovered/Resolved]
  - Neutropenia [Unknown]
  - Enterococcal sepsis [Unknown]
  - Cytomegalovirus viraemia [Unknown]
  - Clostridium colitis [Unknown]
  - Pneumonia [Unknown]
  - Febrile neutropenia [Unknown]
  - Staphylococcal sepsis [Unknown]
  - Infection [Unknown]
  - Platelet count decreased [Unknown]
  - Haemoglobin decreased [Unknown]
